FAERS Safety Report 7572739-0 (Version None)
Quarter: 2011Q2

REPORT INFORMATION
  Report Type: 
  Country: None (occurrence: None)
  Receive Date: 20110620
  Receipt Date: 20110608
  Transmission Date: 20111010
  Serious: Yes (Hospitalization)
  Sender: FDA-Public Use
  Company Number: 949015

PATIENT
  Age: 71 Year
  Sex: Female

DRUGS (5)
  1. ONDANSETRON [Concomitant]
  2. PACLITAXEL [Suspect]
     Indication: BREAST CANCER METASTATIC
     Dosage: 150 MG, INTRAVENOUS
     Route: 042
     Dates: start: 20110318
  3. METHYLPREDNISOLONE [Concomitant]
  4. ATARAX [Concomitant]
  5. ZANTAC [Concomitant]

REACTIONS (4)
  - BACK PAIN [None]
  - URTICARIA [None]
  - INFUSION RELATED REACTION [None]
  - MALAISE [None]
